FAERS Safety Report 8551726-X (Version None)
Quarter: 2012Q3

REPORT INFORMATION
  Report Type: 
  Country: None (occurrence: None)
  Receive Date: 20120723
  Receipt Date: 20120723
  Transmission Date: 20120928
  Serious: Yes (Hospitalization)
  Sender: FDA-Public Use
  Company Number: None

PATIENT
  Age: 66 Year
  Sex: Female
  Weight: 69.8539 kg

DRUGS (18)
  1. INDOMETHACIN -INDOCIN SR- [Concomitant]
  2. OXYCODONE -ROXICODONE- [Concomitant]
  3. XARELTO [Concomitant]
  4. CHOLECALCIFEROL -VITAMIN D3- [Concomitant]
  5. NYSTATIN -MYCOSTATIN- [Concomitant]
  6. POLYETHYLENE GLYCOL -GLYCOLAX- [Concomitant]
  7. ACETAMINOPHEN [Concomitant]
  8. MAXIPIME [Concomitant]
  9. DIPHENHYDRAMINE -BENADRYL- [Concomitant]
  10. MULTIVITAMIN -THERAGRAN- [Concomitant]
  11. FLEXERIL [Concomitant]
  12. MAGNESIUM OXIDE -MAG-OX- [Concomitant]
  13. XARELTO [Suspect]
     Indication: PROPHYLAXIS
     Dosage: 10 MG DAILY PO
     Route: 048
     Dates: start: 20120605, end: 20120607
  14. XARELTO [Suspect]
     Indication: HIP ARTHROPLASTY
     Dosage: 10 MG DAILY PO
     Route: 048
     Dates: start: 20120605, end: 20120607
  15. OMEGA-3-ACID ETHYL ESTERS (LOVAZA) [Concomitant]
  16. VANCOMYCIN [Concomitant]
  17. PROTONIX [Concomitant]
  18. ASPIRIN EC TABLET [Concomitant]

REACTIONS (1)
  - DEEP VEIN THROMBOSIS [None]
